FAERS Safety Report 4743872-3 (Version None)
Quarter: 2005Q3

REPORT INFORMATION
  Report Type: 
  Country: None (occurrence: None)
  Receive Date: 20050809
  Receipt Date: 20050727
  Transmission Date: 20060218
  Serious: Yes (Hospitalization)
  Sender: FDA-Public Use
  Company Number: HQWYE582328JUL05

PATIENT
  Age: 30 Year
  Sex: Female

DRUGS (13)
  1. RAPAMUNE [Suspect]
     Indication: PROPHYLAXIS AGAINST TRANSPLANT REJECTION
     Dosage: SEE IMAGE
     Route: 048
     Dates: start: 20050614, end: 20050614
  2. RAPAMUNE [Suspect]
     Indication: PROPHYLAXIS AGAINST TRANSPLANT REJECTION
     Dosage: SEE IMAGE
     Route: 048
     Dates: start: 20050615
  3. PREDNISONE [Concomitant]
  4. SULFAMETHOXAZOLE + TRIMETHOPRIM [Concomitant]
  5. OMEPRAZOLE [Concomitant]
  6. ASPIRIN [Concomitant]
  7. SIMVASTATIN [Concomitant]
  8. ATENOLOL [Concomitant]
  9. FUROSEMIDE [Concomitant]
  10. CYCLOSPORINE [Suspect]
     Dosage: SEE IMAGE
     Dates: start: 20050701, end: 20050714
  11. CYCLOSPORINE [Suspect]
     Dosage: SEE IMAGE
     Dates: start: 20050715, end: 20050721
  12. CYCLOSPORINE [Suspect]
     Dosage: SEE IMAGE
     Dates: start: 20050722, end: 20050725
  13. CYCLOSPORINE [Suspect]
     Dosage: SEE IMAGE
     Dates: start: 20050726

REACTIONS (3)
  - HAEMATOCRIT DECREASED [None]
  - HAEMOGLOBIN DECREASED [None]
  - RENAL IMPAIRMENT [None]
